FAERS Safety Report 8480713-5 (Version None)
Quarter: 2012Q3

REPORT INFORMATION
  Report Type: 
  Country: None (occurrence: None)
  Receive Date: 20120702
  Receipt Date: 20120621
  Transmission Date: 20120928
  Serious: Yes (Other)
  Sender: FDA-Public Use
  Company Number: US-BRISTOL-MYERS SQUIBB COMPANY-16703365

PATIENT
  Age: 68 Year
  Sex: Male
  Weight: 59 kg

DRUGS (3)
  1. ERBITUX [Suspect]
     Indication: HEAD AND NECK CANCER
     Dosage: NO OF COURSE: 4 LAST DOSE:30NOV04 LOADING DOSE:668MG
     Dates: start: 20041104
  2. CISPLATIN [Suspect]
     Indication: HEAD AND NECK CANCER
     Dosage: LAST DOSE: 30-NOV-2004
     Dates: start: 20041109
  3. AMIFOSTINE [Concomitant]

REACTIONS (2)
  - RADIATION INJURY [None]
  - STOMATITIS [None]
